FAERS Safety Report 4393147-X (Version None)
Quarter: 2004Q3

REPORT INFORMATION
  Report Type: 
  Country: None (occurrence: None)
  Receive Date: 20040702
  Receipt Date: 20040412
  Transmission Date: 20050211
  Serious: Yes (Other)
  Sender: FDA-Public Use
  Company Number: 2004UW07340

PATIENT
  Age: 49 Year
  Sex: Male
  Weight: 95.2554 kg

DRUGS (7)
  1. CRESTOR [Suspect]
     Indication: BLOOD CHOLESTEROL INCREASED
     Dosage: 20 MG PO
     Route: 048
     Dates: start: 20040102, end: 20040206
  2. CRESTOR [Suspect]
     Indication: BLOOD CHOLESTEROL INCREASED
     Dosage: 10 MG PO
     Route: 048
     Dates: start: 20040206
  3. ALLEGRA [Concomitant]
  4. SINGULAIR [Concomitant]
  5. NO MATCH [Concomitant]
  6. RHINOCORT [Concomitant]
  7. ECOTRIN [Concomitant]

REACTIONS (1)
  - DIVERTICULITIS [None]
